FAERS Safety Report 8163953-4 (Version None)
Quarter: 2012Q1

REPORT INFORMATION
  Report Type: 
  Country: None (occurrence: None)
  Receive Date: 20120224
  Receipt Date: 20120215
  Transmission Date: 20120608
  Serious: Yes (Hospitalization)
  Sender: FDA-Public Use
  Company Number: US-JNJFOC-20120206251

PATIENT
  Sex: Female
  Weight: 17.7 kg

DRUGS (5)
  1. PROBIOTICS [Concomitant]
  2. MESALAMINE [Concomitant]
  3. REMICADE [Suspect]
     Indication: CROHN'S DISEASE
     Route: 042
     Dates: start: 20101109
  4. PREVACID [Concomitant]
  5. BUDESONIDE [Concomitant]

REACTIONS (1)
  - CROHN'S DISEASE [None]
